FAERS Safety Report 5518226-2 (Version None)
Quarter: 2007Q4

REPORT INFORMATION
  Report Type: 
  Country: None (occurrence: None)
  Receive Date: 20071115
  Receipt Date: 20071108
  Transmission Date: 20080405
  Serious: Yes (Other)
  Sender: FDA-Public Use
  Company Number: B0495217A

PATIENT
  Age: 26 Year
  Sex: Female

DRUGS (2)
  1. NIQUITIN CQ CLEAR 14MG [Suspect]
     Route: 062
     Dates: start: 20070801
  2. NIQUITIN CQ 2MG LOZENGE [Suspect]
     Dosage: 5LOZ PER DAY
     Route: 002
     Dates: start: 20070801

REACTIONS (5)
  - ABORTION SPONTANEOUS [None]
  - DIZZINESS [None]
  - FATIGUE [None]
  - HYPOTENSION [None]
  - INTRA-UTERINE DEATH [None]
